FAERS Safety Report 26101568 (Version 1)
Quarter: 2025Q4

REPORT INFORMATION
  Report Type: Spontaneous
  Country: GB (occurrence: GB)
  Receive Date: 20251128
  Receipt Date: 20251128
  Transmission Date: 20260118
  Serious: Yes (Disabling, Other)
  Sender: RANBAXY
  Company Number: GB-MHRA-MED-202511141633067920-MVFKW

PATIENT
  Age: 55 Year
  Weight: 111 kg

DRUGS (2)
  1. SERTRALINE [Suspect]
     Active Substance: SERTRALINE HYDROCHLORIDE
     Indication: Adverse drug reaction
     Dosage: UNK
     Route: 065
     Dates: start: 20240101
  2. DIHYDROCODEINE [Suspect]
     Active Substance: DIHYDROCODEINE
     Indication: Adverse drug reaction
     Dosage: UNK
     Route: 065
     Dates: start: 20251008, end: 20251008

REACTIONS (4)
  - Medication error [Unknown]
  - Somnolence [Not Recovered/Not Resolved]
  - Hypoxia [Recovering/Resolving]
  - Liver function test abnormal [Recovering/Resolving]

NARRATIVE: CASE EVENT DATE: 20251008
